FAERS Safety Report 7125040-3 (Version None)
Quarter: 2010Q4

REPORT INFORMATION
  Report Type: 
  Country: None (occurrence: None)
  Receive Date: 20101129
  Receipt Date: 20101118
  Transmission Date: 20110411
  Serious: Yes (Other)
  Sender: FDA-Public Use
  Company Number: CA-JNJFOC-20101106521

PATIENT
  Sex: Female
  Weight: 68 kg

DRUGS (3)
  1. REMICADE [Suspect]
     Indication: CROHN'S DISEASE
     Route: 042
  2. REMICADE [Suspect]
     Route: 042
  3. PREDNISONE [Concomitant]
     Indication: CROHN'S DISEASE
     Dosage: STARTED 4 WEEKS AGO

REACTIONS (7)
  - CHEST PAIN [None]
  - CROHN'S DISEASE [None]
  - DYSPNOEA [None]
  - FLUSHING [None]
  - HYPOAESTHESIA FACIAL [None]
  - INFUSION RELATED REACTION [None]
  - URTICARIA [None]
